FAERS Safety Report 8277213-4 (Version None)
Quarter: 2012Q2

REPORT INFORMATION
  Report Type: 
  Country: None (occurrence: None)
  Receive Date: 20120412
  Receipt Date: 20120402
  Transmission Date: 20120825
  Serious: Yes (Death)
  Sender: FDA-Public Use
  Company Number: US-GLAXOSMITHKLINE-A0932565A

PATIENT
  Age: 50 Year
  Sex: Female

DRUGS (1)
  1. ROSIGLITAZONE MALEATE [Suspect]
     Indication: TYPE 2 DIABETES MELLITUS
     Route: 048
     Dates: start: 20000101, end: 20080328

REACTIONS (4)
  - MYOCARDIAL INFARCTION [None]
  - THROMBOSIS [None]
  - DEATH [None]
  - CARDIAC FAILURE CONGESTIVE [None]
